FAERS Safety Report 6900785-6 (Version None)
Quarter: 2010Q3

REPORT INFORMATION
  Report Type: 
  Country: None (occurrence: None)
  Receive Date: 20100803
  Receipt Date: 20100722
  Transmission Date: 20110219
  Serious: Yes (Hospitalization)
  Sender: FDA-Public Use
  Company Number: US-SANOFI-AVENTIS-2010SA043584

PATIENT
  Age: 86 Year
  Sex: Female
  Weight: 184.8 kg

DRUGS (13)
  1. LASIX [Suspect]
     Route: 048
  2. VELCADE [Suspect]
     Indication: MULTIPLE MYELOMA
     Dosage: 1.3MG/M2, CYCLIC
     Route: 051
     Dates: start: 20100330, end: 20100429
  3. DEXAMETHASONE [Suspect]
     Indication: MULTIPLE MYELOMA
     Route: 048
     Dates: start: 20100330, end: 20100429
  4. SERTRALINE HYDROCHLORIDE [Suspect]
     Route: 065
     Dates: end: 20100507
  5. POTASSIUM [Concomitant]
  6. UROXATRAL [Concomitant]
  7. DETROL [Concomitant]
  8. OXYBUTYNIN CHLORIDE [Concomitant]
  9. NEXIUM [Concomitant]
  10. COZAAR [Concomitant]
  11. LEVOTHYROXINE SODIUM [Concomitant]
  12. COREG [Concomitant]
  13. CLONIDINE [Concomitant]

REACTIONS (5)
  - ATRIAL FIBRILLATION [None]
  - CARDIAC FAILURE CONGESTIVE [None]
  - HYPONATRAEMIA [None]
  - PLATELET COUNT DECREASED [None]
  - SYNCOPE [None]
